FAERS Safety Report 9643394 (Version 1)
Quarter: 2013Q4

REPORT INFORMATION
  Report Type: Spontaneous
  Country: JP (occurrence: JP)
  Receive Date: 20131024
  Receipt Date: 20131024
  Transmission Date: 20140711
  Serious: Yes (Other)
  Sender: FDA-Public Use
  Company Number: JP-IPSEN BIOPHARMACEUTICALS, INC.-2013-4601

PATIENT
  Age: 12 Year
  Sex: Female

DRUGS (2)
  1. INCRELEX 10MG/ML (MECASERMIN) (MECASERMIN) [Suspect]
     Indication: INSULIN RESISTANCE SYNDROME
     Dosage: 1-1.6 MG/KG
     Route: 058
  2. INCRELEX 10MG/ML (MECASERMIN) (MECASERMIN) [Suspect]
     Indication: OFF LABEL USE

REACTIONS (4)
  - Diabetic retinopathy [Unknown]
  - Glaucoma [Unknown]
  - Retinal neovascularisation [Unknown]
  - Blindness [Unknown]
